FAERS Safety Report 15499184 (Version 1)
Quarter: 2018Q4

REPORT INFORMATION
  Report Type: Spontaneous
  Country: US (occurrence: US)
  Receive Date: 20181005
  Receipt Date: 20181005
  Transmission Date: 20190205
  Serious: Yes (Death)
  Sender: FDA-Public Use
  Company Number: None

PATIENT
  Age: 75 Year
  Sex: Female
  Weight: 64.5 kg

DRUGS (1)
  1. YESCARTA [Suspect]
     Active Substance: AXICABTAGENE CILOLEUCEL
     Indication: DIFFUSE LARGE B-CELL LYMPHOMA
     Dosage: ?          OTHER DOSE:MAX 2 X 10^8 CAR T;?
     Route: 042
     Dates: start: 20180918

REACTIONS (9)
  - Ejection fraction decreased [None]
  - Hypotension [None]
  - Cardiac arrest [None]
  - Atrial fibrillation [None]
  - Cytokine release syndrome [None]
  - Hypoxia [None]
  - Renal failure [None]
  - Respiratory distress [None]
  - Acidosis [None]

NARRATIVE: CASE EVENT DATE: 20180925
